FAERS Safety Report 8876006 (Version 1)
Quarter: 2012Q4

REPORT INFORMATION
  Report Type: 
  Country: US (occurrence: US)
  Receive Date: 20121030
  Receipt Date: 20121030
  Transmission Date: 20130627
  Serious: Yes (Other)
  Sender: FDA-Public Use
  Company Number: US-COVIDIEN/TYCO HEALTHCARE/MALLINCKRODT-T201203721

PATIENT
  Age: 63 Year
  Sex: Female

DRUGS (5)
  1. OPTIRAY [Suspect]
     Indication: IMAGING PROCEDURE
     Dosage: 97 ml, single
     Dates: start: 20120925, end: 20120925
  2. VERSED [Concomitant]
  3. BENADRYL                           /00000402/ [Concomitant]
     Dosage: UNK
  4. HEPARIN [Concomitant]
     Dosage: UNK
  5. VERAPAMIL [Concomitant]
     Dosage: UNK

REACTIONS (4)
  - Pharyngeal oedema [Recovered/Resolved]
  - Chest discomfort [Recovered/Resolved]
  - Dysphagia [Recovered/Resolved]
  - Dyspnoea [Recovered/Resolved]
